FAERS Safety Report 8206024-0 (Version None)
Quarter: 2012Q1

REPORT INFORMATION
  Report Type: 
  Country: None (occurrence: None)
  Receive Date: 20120313
  Receipt Date: 20120229
  Transmission Date: 20120608
  Serious: Yes (Death, Life-Threatening, Hospitalization, Other)
  Sender: FDA-Public Use
  Company Number: US-MYLANLABS-2012S1005213

PATIENT
  Sex: Male
  Weight: 71.22 kg

DRUGS (32)
  1. BENADRYL [Concomitant]
  2. CENTRUM /02267801/ [Concomitant]
  3. COREG [Concomitant]
  4. LASIX [Concomitant]
  5. LOVAZA [Concomitant]
  6. TYLENOL [Concomitant]
  7. REGLAN [Concomitant]
  8. TEMAZEPAM [Concomitant]
  9. ZOCOR [Concomitant]
  10. CRESTOR [Concomitant]
  11. DIGOXIN [Suspect]
     Indication: MITRAL VALVE PROLAPSE
     Dates: start: 20060526, end: 20080226
  12. MORPHINE [Concomitant]
  13. XOPENEX [Concomitant]
     Dosage: HFA 45 MCG
  14. TEMACEPAU [Concomitant]
  15. AMIODARONE HCL [Concomitant]
  16. CEPACOL /00283202/ [Concomitant]
  17. COUMADIN [Concomitant]
     Dosage: 3MG X 6 DAYS AND 4MG X 1 DAY
  18. METOPROLOL SUCCINATE [Concomitant]
  19. BUMEX [Concomitant]
  20. COLACE [Concomitant]
  21. METOLAZONE [Concomitant]
  22. TORSEMIDE [Concomitant]
  23. VANCOMYCIN [Concomitant]
  24. ALLOPURINOL [Concomitant]
     Dosage: WHICH PERHAPS HAS ERRONEOUSLY BEEN TAKEN
  25. ALTACE [Concomitant]
  26. BIAXIN XL [Concomitant]
     Dosage: FOR 10 DAYS
  27. CLOTRIMAZOLE [Concomitant]
  28. LESCOL [Concomitant]
  29. PRAVACHOL [Concomitant]
  30. ALDACTONE [Concomitant]
  31. NATRECOR [Concomitant]
  32. SPIRIVA [Concomitant]
     Dosage: 18 INHALE 1 CAP DAILY

REACTIONS (97)
  - DEATH [None]
  - MECHANICAL VENTILATION [None]
  - RENAL FAILURE [None]
  - ACIDOSIS [None]
  - OLIGURIA [None]
  - PYREXIA [None]
  - ARRHYTHMIA [None]
  - ASCITES [None]
  - TERMINAL STATE [None]
  - THORACOTOMY [None]
  - ANXIETY [None]
  - AORTIC ARTERIOSCLEROSIS [None]
  - CARDIAC PACEMAKER REPLACEMENT [None]
  - CONTINUOUS HAEMODIAFILTRATION [None]
  - LEFT VENTRICULAR FAILURE [None]
  - WHEEZING [None]
  - HEART RATE IRREGULAR [None]
  - ANHEDONIA [None]
  - OEDEMA PERIPHERAL [None]
  - COMA [None]
  - ENDOTRACHEAL INTUBATION [None]
  - ACUTE PRERENAL FAILURE [None]
  - BACK PAIN [None]
  - CARDIAC MURMUR [None]
  - GENERAL PHYSICAL HEALTH DETERIORATION [None]
  - GOUT [None]
  - HYPONATRAEMIA [None]
  - PAIN IN EXTREMITY [None]
  - UPPER-AIRWAY COUGH SYNDROME [None]
  - RHEUMATIC HEART DISEASE [None]
  - ULTRASOUND SCAN ABNORMAL [None]
  - WATER INTOXICATION [None]
  - COAGULOPATHY [None]
  - CARDIAC ARREST [None]
  - CARDIOGENIC SHOCK [None]
  - HYPOTENSION [None]
  - METABOLIC ENCEPHALOPATHY [None]
  - NEPHROSCLEROSIS [None]
  - CARDIAC VALVE DISEASE [None]
  - CARDIOMEGALY [None]
  - HEPATIC CONGESTION [None]
  - LYMPHORRHOEA [None]
  - MENTAL STATUS CHANGES [None]
  - RALES [None]
  - WALKING AID USER [None]
  - DISSEMINATED INTRAVASCULAR COAGULATION [None]
  - ATELECTASIS [None]
  - ATRIAL FIBRILLATION [None]
  - CARDIOMYOPATHY [None]
  - RESPIRATORY FAILURE [None]
  - MULTI-ORGAN FAILURE [None]
  - PNEUMOTHORAX [None]
  - PULMONARY HYPERTENSION [None]
  - PULMONARY EMBOLISM [None]
  - AZOTAEMIA [None]
  - CACHEXIA [None]
  - CHRONIC OBSTRUCTIVE PULMONARY DISEASE [None]
  - GASTROINTESTINAL TUBE INSERTION [None]
  - JUGULAR VEIN DISTENSION [None]
  - NAUSEA [None]
  - NEPHROPATHY [None]
  - RENAL CYST [None]
  - SOMNOLENCE [None]
  - COUGH [None]
  - OROPHARYNGEAL PAIN [None]
  - PLEURAL EFFUSION [None]
  - PULMONARY OEDEMA [None]
  - VENTRICULAR TACHYCARDIA [None]
  - FLUID OVERLOAD [None]
  - HYPERKALAEMIA [None]
  - POOR QUALITY SLEEP [None]
  - EMOTIONAL DISTRESS [None]
  - DYSPNOEA [None]
  - HYPOXIA [None]
  - IMPLANTABLE DEFIBRILLATOR INSERTION [None]
  - UNRESPONSIVE TO STIMULI [None]
  - LABORATORY TEST ABNORMAL [None]
  - BREATH SOUNDS ABNORMAL [None]
  - CONDITION AGGRAVATED [None]
  - HEART SOUNDS ABNORMAL [None]
  - MOBILITY DECREASED [None]
  - PETECHIAE [None]
  - RHINITIS [None]
  - VISUAL IMPAIRMENT [None]
  - PALPITATIONS [None]
  - COLD SWEAT [None]
  - ECONOMIC PROBLEM [None]
  - CARDIAC FAILURE CONGESTIVE [None]
  - RESPIRATORY ARREST [None]
  - TOXICITY TO VARIOUS AGENTS [None]
  - ABDOMINAL HERNIA [None]
  - HEADACHE [None]
  - LETHARGY [None]
  - NOCTURIA [None]
  - ORTHOPNOEA [None]
  - THROMBOCYTOPENIA [None]
  - ASTHENIA [None]
